FAERS Safety Report 6264688-5 (Version None)
Quarter: 2009Q3

REPORT INFORMATION
  Report Type: 
  Country: None (occurrence: None)
  Receive Date: 20090710
  Receipt Date: 20090707
  Transmission Date: 20100115
  Serious: Yes (Death, Hospitalization)
  Sender: FDA-Public Use
  Company Number: JP-ELI_LILLY_AND_COMPANY-JP200906004139

PATIENT
  Sex: Male
  Weight: 47 kg

DRUGS (10)
  1. GEMZAR [Suspect]
     Indication: GALLBLADDER CANCER STAGE IV
     Dosage: 880 MG, OTHER
     Route: 042
     Dates: start: 20080207, end: 20080215
  2. GEMZAR [Suspect]
     Dosage: 920 MG, OTHER
     Route: 042
     Dates: start: 20080515, end: 20080527
  3. TS 1 [Concomitant]
     Indication: GALLBLADDER CANCER STAGE IV
     Dosage: 100 MG, DAILY (1/D)
     Route: 048
     Dates: start: 20080515, end: 20080520
  4. PARIET /JPN/ [Concomitant]
     Dosage: 10 MG, DAILY (1/D)
     Route: 048
     Dates: start: 20071224
  5. URSO 250 [Concomitant]
     Dosage: 300 MG, DAILY (1/D)
     Route: 048
     Dates: start: 20071224
  6. SELBEX [Concomitant]
     Dosage: 150 MG, DAILY (1/D)
     Route: 048
     Dates: start: 20071224
  7. LASIX [Concomitant]
     Dosage: 20 MG, DAILY (1/D)
     Route: 048
     Dates: start: 20071224
  8. MAGMITT [Concomitant]
     Dosage: 1980 MG, DAILY (1/D)
     Route: 048
     Dates: start: 20071224
  9. KYTRIL /01178102/ [Concomitant]
     Indication: PROPHYLAXIS
     Dosage: 3 MG, DAILY (1/D)
     Route: 042
     Dates: start: 20080215, end: 20080527
  10. RINDERON #1 [Concomitant]
     Indication: PROPHYLAXIS
     Dosage: 4 MG, DAILY (1/D)
     Route: 042
     Dates: start: 20080215, end: 20080527

REACTIONS (5)
  - CHOLANGITIS [None]
  - LIVER ABSCESS [None]
  - MALIGNANT ASCITES [None]
  - MALIGNANT NEOPLASM PROGRESSION [None]
  - PYREXIA [None]
